FAERS Safety Report 17489480 (Version 1)
Quarter: 2020Q1

REPORT INFORMATION
  Report Type: Report from Study
  Country: CH (occurrence: CH)
  Receive Date: 20200303
  Receipt Date: 20200303
  Transmission Date: 20200409
  Serious: Yes (Congenital Anomaly)
  Sender: FDA-Public Use
  Company Number: CH-ASTRAZENECA-2020SE27333

PATIENT
  Age: 0 Week

DRUGS (7)
  1. ESOMEPRAZOLE. [Suspect]
     Active Substance: ESOMEPRAZOLE MAGNESIUM
     Route: 064
  2. OLANZAPINE. [Suspect]
     Active Substance: OLANZAPINE
     Route: 064
  3. SUMATRIPTAN. [Suspect]
     Active Substance: SUMATRIPTAN
     Route: 064
  4. ZOLPIDEM [Suspect]
     Active Substance: ZOLPIDEM TARTRATE
     Route: 064
  5. ALPRAZOLAM. [Suspect]
     Active Substance: ALPRAZOLAM
     Route: 064
  6. SERTRALINE [Suspect]
     Active Substance: SERTRALINE HYDROCHLORIDE
     Route: 064
  7. DOMPERIDONE [Suspect]
     Active Substance: DOMPERIDONE
     Route: 064

REACTIONS (1)
  - Congenital teratoma [Unknown]
